FAERS Safety Report 8457748-1 (Version None)
Quarter: 2012Q2

REPORT INFORMATION
  Report Type: 
  Country: None (occurrence: None)
  Receive Date: 20120618
  Receipt Date: 20120618
  Transmission Date: 20120825
  Serious: Yes (Other)
  Sender: FDA-Public Use
  Company Number: None

PATIENT
  Age: 36 Year
  Sex: Female
  Weight: 49.8957 kg

DRUGS (1)
  1. CIPROFLOXACIN [Suspect]
     Indication: URINARY TRACT INFECTION
     Dosage: 1 2XDAY PO
     Route: 048
     Dates: start: 20120604, end: 20120612

REACTIONS (7)
  - PAIN IN EXTREMITY [None]
  - VISION BLURRED [None]
  - HEADACHE [None]
  - FATIGUE [None]
  - ARTHRALGIA [None]
  - INSOMNIA [None]
  - ANXIETY [None]
